FAERS Safety Report 4823813-0 (Version None)
Quarter: 2005Q4

REPORT INFORMATION
  Report Type: 
  Country: None (occurrence: None)
  Receive Date: 20051109
  Receipt Date: 20050714
  Transmission Date: 20060501
  Serious: Yes (Death)
  Sender: FDA-Public Use
  Company Number: PHBS2005AU16155

PATIENT
  Age: 45 Year
  Sex: Female
  Weight: 41 kg

DRUGS (1)
  1. BENAZEPRIL HYDROCHLORIDE [Suspect]

REACTIONS (1)
  - DEATH [None]
